FAERS Safety Report 17040262 (Version 3)
Quarter: 2020Q1

REPORT INFORMATION
  Report Type: Spontaneous
  Country: FR (occurrence: FR)
  Receive Date: 20191116
  Receipt Date: 20200309
  Transmission Date: 20200409
  Serious: Yes (Other)
  Sender: FDA-Public Use
  Company Number: FR-MYLANLABS-2019M1110304

PATIENT
  Age: 46 Year
  Sex: Male

DRUGS (10)
  1. SERENOA REPENS [Concomitant]
     Active Substance: SERENOA REPENS WHOLE
     Dosage: UNK
  2. UROREC [Concomitant]
     Active Substance: SILODOSIN
     Dosage: UNK
  3. PREGABALIN. [Suspect]
     Active Substance: PREGABALIN
     Indication: NEUROPATHY PERIPHERAL
     Dosage: 25 MG, 4X/DAY (100 MG, QD)
     Route: 048
     Dates: start: 2014
  4. LYRICA [Suspect]
     Active Substance: PREGABALIN
     Indication: NEUROPATHY PERIPHERAL
     Dosage: 100 MILLIGRAM, QD 25 MG, 4X/DAY
     Dates: start: 2014
  5. PREGABALIN KRKA [Suspect]
     Active Substance: PREGABALIN
     Indication: PAIN
     Dosage: 25 MG, 4X/DAY
     Route: 048
  6. PREGABALIN. [Suspect]
     Active Substance: PREGABALIN
     Indication: NEURALGIA
     Dosage: 200 MG, DAILY, (25MG 8 TIMES PER DAY DAILY)
     Route: 048
  7. LYRICA [Suspect]
     Active Substance: PREGABALIN
     Indication: NEURALGIA
     Dosage: 25 MG, 8X/DAY
     Dates: start: 2014
  8. LYRICA [Suspect]
     Active Substance: PREGABALIN
     Indication: PAIN
  9. PREGABALIN KRKA [Suspect]
     Active Substance: PREGABALIN
     Indication: NEUROGENIC BLADDER
     Dosage: 200 MG, DAILY (25MG 8 TIMES PER DAY DAILY)
     Route: 048
  10. ALPRAZOLAM. [Concomitant]
     Active Substance: ALPRAZOLAM
     Dosage: UNK

REACTIONS (19)
  - Generalised anxiety disorder [Unknown]
  - Anxiety [Unknown]
  - Burning sensation [Unknown]
  - Hypertonic bladder [Unknown]
  - Speech disorder [Unknown]
  - Drug intolerance [Unknown]
  - Off label use [Unknown]
  - Drug ineffective [Unknown]
  - Memory impairment [Unknown]
  - Feeling abnormal [Unknown]
  - Product use issue [Unknown]
  - Nasal dryness [Unknown]
  - Diplopia [Unknown]
  - Insomnia [Unknown]
  - Sedation [Unknown]
  - Confusional state [Unknown]
  - Suicidal ideation [Recovered/Resolved]
  - Formication [Unknown]
  - Fear [Unknown]

NARRATIVE: CASE EVENT DATE: 2014
